FAERS Safety Report 17676548 (Version 1)
Quarter: 2020Q2

REPORT INFORMATION
  Report Type: Spontaneous
  Country: US (occurrence: US)
  Receive Date: 20200416
  Receipt Date: 20200416
  Transmission Date: 20200714
  Serious: Yes (Hospitalization)
  Sender: FDA-Public Use
  Company Number: None

PATIENT
  Age: 59 Year
  Sex: Male
  Weight: 59.9 kg

DRUGS (6)
  1. MEGACE [Concomitant]
     Active Substance: MEGESTROL ACETATE
     Dates: start: 20200201
  2. BOSUTINIB [Suspect]
     Active Substance: BOSUTINIB
     Indication: NON-SMALL CELL LUNG CANCER
     Route: 048
     Dates: start: 20200225, end: 20200325
  3. ONDANSETRON [Concomitant]
     Active Substance: ONDANSETRON
     Dates: start: 20190731
  4. XARELTO [Concomitant]
     Active Substance: RIVAROXABAN
     Dates: start: 20200109, end: 20200317
  5. IBUPROFEN. [Concomitant]
     Active Substance: IBUPROFEN
  6. FENTANYL TRANSDERMAL SYSTEM [Concomitant]
     Active Substance: FENTANYL
     Dates: start: 20200109

REACTIONS (7)
  - Cellulitis [None]
  - Thrombocytopenia [None]
  - Fatigue [None]
  - Oesophagitis [None]
  - Haematemesis [None]
  - Neutrophil count decreased [None]
  - Haemoglobin decreased [None]

NARRATIVE: CASE EVENT DATE: 20200326
